FAERS Safety Report 5080469-2 (Version None)
Quarter: 2006Q3

REPORT INFORMATION
  Report Type: 
  Country: None (occurrence: None)
  Receive Date: 20060809
  Receipt Date: 20060731
  Transmission Date: 20061208
  Serious: Yes (Hospitalization)
  Sender: FDA-Public Use
  Company Number: 2006-08-0012

PATIENT
  Age: 14 Month
  Sex: Male
  Weight: 9.6 kg

DRUGS (2)
  1. BETAMETHASONE [Suspect]
     Indication: LARYNGITIS
     Dosage: ORAL
     Route: 048
     Dates: start: 20060109, end: 20060111
  2. BETAMETHASONE [Suspect]
     Indication: PYREXIA
     Dosage: ORAL
     Route: 048
     Dates: start: 20060109, end: 20060111

REACTIONS (4)
  - ARTHRITIS [None]
  - GAIT DISTURBANCE [None]
  - LYMPHADENOPATHY [None]
  - OEDEMA PERIPHERAL [None]
